FAERS Safety Report 23145098 (Version 1)
Quarter: 2023Q4

REPORT INFORMATION
  Report Type: Spontaneous
  Country: CN (occurrence: CN)
  Receive Date: 20231103
  Receipt Date: 20231103
  Transmission Date: 20240110
  Serious: Yes (Life-Threatening)
  Sender: FDA-Public Use
  Company Number: CN-PFIZER INC-PV202300179237

PATIENT
  Age: 9 Year
  Sex: Female
  Weight: 23.1 kg

DRUGS (9)
  1. METHYLPREDNISOLONE SODIUM SUCCINATE [Suspect]
     Active Substance: METHYLPREDNISOLONE SODIUM SUCCINATE
     Indication: Leukaemia
     Dosage: 40 MG
     Route: 041
     Dates: start: 20230722
  2. METHOTREXATE SODIUM [Suspect]
     Active Substance: METHOTREXATE SODIUM
     Indication: Leukaemia
     Dosage: 50 MG, 1X/14DAYS
     Route: 037
     Dates: start: 20230809, end: 20230823
  3. CYTARABINE [Suspect]
     Active Substance: CYTARABINE
     Indication: Leukaemia
     Dosage: 50 MG, 1X/14DAYS
     Route: 037
     Dates: start: 20230809, end: 20230823
  4. VINCRISTINE SULFATE [Suspect]
     Active Substance: VINCRISTINE SULFATE
     Dosage: 1.15 MG
     Route: 042
     Dates: start: 20230722
  5. DOXORUBICIN HYDROCHLORIDE [Suspect]
     Active Substance: DOXORUBICIN HYDROCHLORIDE
     Dosage: 14.25 MG, WEEKLY
     Route: 041
     Dates: start: 20230722
  6. DOXORUBICIN HYDROCHLORIDE [Suspect]
     Active Substance: DOXORUBICIN HYDROCHLORIDE
     Dosage: 14.25 MG, WEEKLY
     Route: 041
     Dates: start: 20230809
  7. DOXORUBICIN HYDROCHLORIDE [Suspect]
     Active Substance: DOXORUBICIN HYDROCHLORIDE
     Dosage: 14.25 MG, WEEKLY
     Route: 041
     Dates: start: 20230823
  8. PEGASPARGASE [Suspect]
     Active Substance: PEGASPARGASE
     Dosage: 3.2 ML
     Route: 030
     Dates: start: 20230809
  9. PEGASPARGASE [Suspect]
     Active Substance: PEGASPARGASE
     Dosage: 3.2 ML
     Route: 030
     Dates: start: 20230823

REACTIONS (2)
  - Myelosuppression [Recovered/Resolved]
  - Cytopenia [Recovered/Resolved]

NARRATIVE: CASE EVENT DATE: 20230817
